APPROVED DRUG PRODUCT: KLOR-CON
Active Ingredient: POTASSIUM CHLORIDE
Strength: 20MEQ
Dosage Form/Route: FOR SOLUTION;ORAL
Application: A209662 | Product #001 | TE Code: AA
Applicant: UPSHER SMITH LABORATORIES LLC
Approved: Oct 23, 2017 | RLD: No | RS: No | Type: RX